FAERS Safety Report 19714216 (Version 4)
Quarter: 2021Q3

REPORT INFORMATION
  Report Type: Spontaneous
  Country: US (occurrence: US)
  Receive Date: 20210818
  Receipt Date: 20210914
  Transmission Date: 20211014
  Serious: Yes (Other)
  Sender: FDA-Public Use
  Company Number: US-NOVEN PHARMACEUTICALS, INC.-2021-NOV-US003635

PATIENT
  Age: 56 Year
  Sex: Female

DRUGS (3)
  1. COMBIPATCH [Suspect]
     Active Substance: ESTRADIOL\NORETHINDRONE ACETATE
     Indication: MENOPAUSAL SYMPTOMS
     Dosage: 50/ 250 MCG/DAY, UNK
     Route: 062
  2. PROGESTERONE. [Concomitant]
     Active Substance: PROGESTERONE
     Indication: PRODUCT USED FOR UNKNOWN INDICATION
  3. COMBIPATCH [Suspect]
     Active Substance: ESTRADIOL\NORETHINDRONE ACETATE
     Indication: MENSTRUATION IRREGULAR
     Dosage: 50/ 250 MCG/DAY, UNK
     Route: 062
     Dates: end: 20210812

REACTIONS (5)
  - Therapeutic product ineffective [Recovered/Resolved]
  - Device issue [Recovered/Resolved]
  - Product adhesion issue [Recovered/Resolved]
  - Device adhesion issue [Recovered/Resolved]
  - Product dose omission in error [Recovered/Resolved]
